FAERS Safety Report 4586576-2 (Version None)
Quarter: 2005Q1

REPORT INFORMATION
  Report Type: 
  Country: None (occurrence: None)
  Receive Date: 20050218
  Receipt Date: 20040427
  Transmission Date: 20050727
  Serious: No
  Sender: FDA-Public Use
  Company Number: US-BRISTOL-MYERS SQUIBB COMPANY-12573549

PATIENT

DRUGS (1)
  1. TAXOL [Suspect]

REACTIONS (1)
  - RASH [None]
